FAERS Safety Report 24602532 (Version 1)
Quarter: 2024Q4

REPORT INFORMATION
  Report Type: Spontaneous
  Country: CN (occurrence: CN)
  Receive Date: 20241111
  Receipt Date: 20241111
  Transmission Date: 20250115
  Serious: Yes (Hospitalization)
  Sender: TERSERA THERAPEUTICS
  Company Number: CN-ASTRAZENECA-202410CHN028538CN

PATIENT

DRUGS (3)
  1. GOSERELIN [Suspect]
     Active Substance: GOSERELIN
     Indication: Neoplasm malignant
     Dosage: 3.6 MILLIGRAM, QD
     Route: 059
     Dates: start: 20240623, end: 20241030
  2. ZOLADEX [Suspect]
     Active Substance: GOSERELIN ACETATE
     Indication: Neoplasm malignant
     Dosage: UNK
     Route: 065
  3. LETROZOLE [Suspect]
     Active Substance: LETROZOLE
     Indication: Neoplasm malignant
     Dosage: 2.5 MILLIGRAM, QD
     Route: 048
     Dates: start: 20240623, end: 20241030

REACTIONS (3)
  - Muscular weakness [Unknown]
  - Joint stiffness [Unknown]
  - Arthralgia [Unknown]

NARRATIVE: CASE EVENT DATE: 20241028
